FAERS Safety Report 8173991-3 (Version None)
Quarter: 2012Q1

REPORT INFORMATION
  Report Type: 
  Country: None (occurrence: None)
  Receive Date: 20120229
  Receipt Date: 20120221
  Transmission Date: 20120608
  Serious: No
  Sender: FDA-Public Use
  Company Number: US-B.I. PHARMACEUTICALS,INC./RIDGEFIELD-2012-BP-03554BP

PATIENT
  Sex: Female

DRUGS (3)
  1. LOVAZA [Concomitant]
     Indication: ROUTINE HEALTH MAINTENANCE
  2. C-THYROID [Concomitant]
     Indication: HYPOTHYROIDISM
  3. SPIRIVA [Suspect]
     Indication: CHRONIC OBSTRUCTIVE PULMONARY DISEASE
     Dosage: 18 MCG
     Route: 055
     Dates: start: 20111201

REACTIONS (1)
  - DYSPNOEA [None]
